FAERS Safety Report 5618985-4 (Version None)
Quarter: 2008Q1

REPORT INFORMATION
  Report Type: 
  Country: None (occurrence: None)
  Receive Date: 20080207
  Receipt Date: 20080205
  Transmission Date: 20080703
  Serious: Yes (Hospitalization)
  Sender: FDA-Public Use
  Company Number: US-BOEHRINGER INGELHEIM GMBH, GERMANY-2008-BP-01730BP

PATIENT
  Sex: Female

DRUGS (2)
  1. SPIRIVA [Suspect]
     Indication: SCOLIOSIS
     Route: 055
     Dates: start: 20060101
  2. SPIRIVA [Suspect]
     Indication: DYSPNOEA

REACTIONS (3)
  - URINARY RETENTION [None]
  - URINARY TRACT INFECTION [None]
  - VITREOUS FLOATERS [None]
